FAERS Safety Report 9455789 (Version 1)
Quarter: 2013Q3

REPORT INFORMATION
  Report Type: Report from Study
  Country: US (occurrence: US)
  Receive Date: 20130813
  Receipt Date: 20130813
  Transmission Date: 20140515
  Serious: Yes (Life-Threatening, Hospitalization)
  Sender: FDA-Public Use
  Company Number: US-B.I. PHARMACEUTICALS,INC./RIDGEFIELD-2013-BI-24681GD

PATIENT
  Age: 79 Year
  Sex: Male

DRUGS (9)
  1. PRADAXA [Suspect]
     Route: 048
  2. MULTAQ [Suspect]
  3. ASPIRIN [Suspect]
  4. COLCHICINE [Concomitant]
  5. EPLERENONE [Concomitant]
  6. FUROSEMIDE [Concomitant]
  7. LOVAZA [Concomitant]
  8. TOPROL-XL [Concomitant]
  9. CRESTOR [Concomitant]

REACTIONS (2)
  - Gastrointestinal haemorrhage [Unknown]
  - Drug interaction [Unknown]
